FAERS Safety Report 9165651 (Version 1)
Quarter: 2013Q1

REPORT INFORMATION
  Report Type: Spontaneous
  Country: None (occurrence: None)
  Receive Date: 20130227
  Receipt Date: 20130227
  Transmission Date: 20140127
  Serious: Yes (Other)
  Sender: FDA-Public Use
  Company Number: GER/UKI/13/0028158

PATIENT
  Age: 40 Year
  Sex: Female
  Weight: 69.85 kg

DRUGS (3)
  1. LAMOTRIGINE (LAMOTRIGINE) [Suspect]
  2. PROPRANOLOL (PROPRANOLOL) [Suspect]
     Route: 048
     Dates: start: 200911
  3. PROPRANOLOL (PROPRANOLOL) [Suspect]
     Route: 048
     Dates: start: 200911

REACTIONS (3)
  - Weight increased [None]
  - Acne pustular [None]
  - Mood swings [None]
